FAERS Safety Report 4388737-4 (Version None)
Quarter: 2004Q3

REPORT INFORMATION
  Report Type: 
  Country: None (occurrence: None)
  Receive Date: 20040701
  Receipt Date: 20040629
  Transmission Date: 20050211
  Serious: Yes (Other)
  Sender: FDA-Public Use
  Company Number: CA-GLAXOSMITHKLINE-A0516584A

PATIENT
  Age: 78 Year
  Sex: Male
  Weight: 100 kg

DRUGS (8)
  1. CARVEDILOL [Suspect]
     Dosage: 12.5MG TWICE PER DAY
     Dates: start: 20010704
  2. AMIODARONE HCL [Suspect]
     Indication: VENTRICULAR TACHYCARDIA
     Dosage: 100MG PER DAY
     Dates: start: 20010701, end: 20040510
  3. LASIX [Concomitant]
     Dosage: 40MG PER DAY
  4. COREG [Concomitant]
     Dosage: 12.5MG TWICE PER DAY
  5. ZESTRIL [Concomitant]
     Dosage: 20MG PER DAY
  6. ASPIRIN [Concomitant]
     Dosage: 325MG PER DAY
  7. THYROID TAB [Concomitant]
  8. PRAVACHOL [Concomitant]

REACTIONS (4)
  - DISEASE RECURRENCE [None]
  - DRUG LEVEL DECREASED [None]
  - IMPLANTABLE DEFIBRILLATOR MALFUNCTION [None]
  - VENTRICULAR TACHYCARDIA [None]
